FAERS Safety Report 18603412 (Version 2)
Quarter: 2020Q4

REPORT INFORMATION
  Report Type: Report from Study
  Country: KR (occurrence: KR)
  Receive Date: 20201210
  Receipt Date: 20201222
  Transmission Date: 20210114
  Serious: Yes (Hospitalization)
  Sender: FDA-Public Use
  Company Number: KR-JNJFOC-20201211286

PATIENT
  Age: 58 Year
  Sex: Female

DRUGS (14)
  1. DENOGAN [Concomitant]
     Active Substance: PROPACETAMOL HYDROCHLORIDE
     Indication: PROPHYLAXIS
     Dosage: 1 TIME
     Route: 042
     Dates: start: 20200920, end: 20200920
  2. TREMFYA [Suspect]
     Active Substance: GUSELKUMAB
  3. TREMFYA [Suspect]
     Active Substance: GUSELKUMAB
  4. VALENTAC [Concomitant]
     Indication: ARTHRALGIA
     Route: 030
     Dates: start: 20200613, end: 20200613
  5. PARACETAMOL [Concomitant]
     Active Substance: ACETAMINOPHEN
     Indication: NASOPHARYNGITIS
     Dosage: 6 TABLETS
     Route: 048
     Dates: start: 20200915, end: 20200917
  6. LEVOTUSS [Concomitant]
     Active Substance: LEVODROPROPIZINE
     Indication: NASOPHARYNGITIS
     Route: 048
     Dates: start: 20200915, end: 20200917
  7. ACTIFED (PSEUDOEPHEDRINE HYDROCHLORIDE\TRIPROLIDINE HYDROCHLORIDE) [Concomitant]
     Active Substance: PSEUDOEPHEDRINE HYDROCHLORIDE\TRIPROLIDINE HYDROCHLORIDE
     Indication: NASOPHARYNGITIS
     Dosage: 1.5 TABLETS
     Route: 048
     Dates: start: 20200915, end: 20200917
  8. MUTERAN [Concomitant]
     Active Substance: ACETYLCYSTEINE
     Indication: PRODUCTIVE COUGH
     Dosage: 1 TIME; 3 CAPSULES
     Route: 048
     Dates: start: 20200922, end: 20200922
  9. CEFTRIAXONE. [Concomitant]
     Active Substance: CEFTRIAXONE
     Indication: INFECTION PROPHYLAXIS
     Dosage: 2
     Route: 042
     Dates: start: 20200919, end: 20200923
  10. CIPLUS [Concomitant]
     Indication: INFECTION PROPHYLAXIS
     Dosage: 1 TIME
     Route: 042
     Dates: start: 20200923, end: 20200928
  11. TAMIPOOL [Concomitant]
     Active Substance: VITAMINS
     Indication: VITAMIN SUPPLEMENTATION
     Dosage: 1 TIME
     Route: 042
     Dates: start: 20200922, end: 20200924
  12. K-CONTIN [Concomitant]
     Indication: ACUTE KIDNEY INJURY
     Dosage: 1 TIME
     Route: 048
     Dates: start: 20200922, end: 20200929
  13. TREMFYA [Suspect]
     Active Substance: GUSELKUMAB
     Indication: PSORIASIS
     Dosage: LAST DOSE: 02-NOV-2020
     Route: 065
     Dates: start: 20191217
  14. COFREL [Concomitant]
     Indication: NASOPHARYNGITIS
     Dosage: 3 TIMES
     Route: 048
     Dates: start: 20200915, end: 20200917

REACTIONS (1)
  - Acute kidney injury [Recovered/Resolved]

NARRATIVE: CASE EVENT DATE: 20200916
